FAERS Safety Report 7536247-5 (Version None)
Quarter: 2011Q2

REPORT INFORMATION
  Report Type: 
  Country: None (occurrence: None)
  Receive Date: 20110609
  Receipt Date: 20110607
  Transmission Date: 20111010
  Serious: Yes (Other)
  Sender: FDA-Public Use
  Company Number: US-BRISTOL-MYERS SQUIBB COMPANY-15731987

PATIENT
  Sex: Female

DRUGS (1)
  1. ONGLYZA [Suspect]
     Dates: start: 20110406

REACTIONS (7)
  - BURNING SENSATION [None]
  - NAUSEA [None]
  - GENERALISED ERYTHEMA [None]
  - CARDIAC FLUTTER [None]
  - PRURITUS [None]
  - DIZZINESS [None]
  - PARAESTHESIA [None]
